FAERS Safety Report 4710597-X (Version None)
Quarter: 2005Q3

REPORT INFORMATION
  Report Type: 
  Country: None (occurrence: None)
  Receive Date: 20050711
  Receipt Date: 20050629
  Transmission Date: 20060218
  Serious: Yes (Other)
  Sender: FDA-Public Use
  Company Number: PHEH2005US07353

PATIENT
  Age: 64 Year
  Sex: Female
  Weight: 45 kg

DRUGS (7)
  1. ZOMETA [Suspect]
     Indication: BREAST CANCER METASTATIC
     Dosage: 4MG QMO
     Route: 042
     Dates: start: 20020520, end: 20050411
  2. PROZAC [Concomitant]
  3. OMEPRAZOL ^AZUPHARMA^ [Concomitant]
  4. ALTACE [Concomitant]
  5. CELEBREX [Concomitant]
  6. FOSAMAX [Concomitant]
     Dates: start: 20040101
  7. HERCEPTIN [Concomitant]

REACTIONS (1)
  - ASEPTIC NECROSIS BONE [None]
